FAERS Safety Report 17244317 (Version 2)
Quarter: 2020Q1

REPORT INFORMATION
  Report Type: Spontaneous
  Country: US (occurrence: US)
  Receive Date: 20200107
  Receipt Date: 20200331
  Transmission Date: 20200409
  Serious: Yes (Other)
  Sender: FDA-Public Use
  Company Number: US-GILEAD-2019-0444761

PATIENT
  Age: 40 Year
  Sex: Male

DRUGS (72)
  1. HUMALOG [Concomitant]
     Active Substance: INSULIN LISPRO
  2. ZOLPIDEM [Concomitant]
     Active Substance: ZOLPIDEM TARTRATE
  3. IBUPROFEN. [Concomitant]
     Active Substance: IBUPROFEN
  4. CLOTRIMAZOLE. [Concomitant]
     Active Substance: CLOTRIMAZOLE
  5. RITONAVIR. [Concomitant]
     Active Substance: RITONAVIR
  6. MUPIROCIN. [Concomitant]
     Active Substance: MUPIROCIN
  7. PREDNISONE. [Concomitant]
     Active Substance: PREDNISONE
  8. SENNALAX [SENNA ALEXANDRINA EXTRACT] [Concomitant]
  9. BRIMONIDINE [Concomitant]
     Active Substance: BRIMONIDINE TARTRATE
  10. ATROPINE OPHTHALMIC [Concomitant]
  11. AMMONIUM LACTATE. [Concomitant]
     Active Substance: AMMONIUM LACTATE
  12. ALPRAZOLAM. [Concomitant]
     Active Substance: ALPRAZOLAM
  13. CLONIDINE. [Concomitant]
     Active Substance: CLONIDINE
  14. GAVILYTE - C [Concomitant]
     Active Substance: POLYETHYLENE GLYCOL 3350\POTASSIUM CHLORIDE\SODIUM BICARBONATE\SODIUM CHLORIDE\SODIUM SULFATE ANHYDROUS
  15. SEVELAMER CARBONATE. [Concomitant]
     Active Substance: SEVELAMER CARBONATE
  16. DIPHENHIST [Concomitant]
     Active Substance: DIPHENHYDRAMINE HYDROCHLORIDE
  17. SULFAMETHOXAZOLE [Concomitant]
     Active Substance: SULFAMETHOXAZOLE
  18. TENOFOVIR DISOPROXIL FUMARATE. [Concomitant]
     Active Substance: TENOFOVIR DISOPROXIL FUMARATE
  19. TRUVADA [Suspect]
     Active Substance: EMTRICITABINE\TENOFOVIR DISOPROXIL FUMARATE
     Indication: HIV INFECTION
     Dosage: UNK
     Route: 048
     Dates: start: 2006, end: 2015
  20. DIOVAN [Concomitant]
     Active Substance: VALSARTAN
  21. BOOST [Concomitant]
     Active Substance: DIETARY SUPPLEMENT
  22. CLOBETASOL [Concomitant]
     Active Substance: CLOBETASOL
  23. TRAZODONE [Concomitant]
     Active Substance: TRAZODONE HYDROCHLORIDE
  24. CLOTRIMAZOLE AND BETAMETHASONE [Concomitant]
     Active Substance: BETAMETHASONE\CLOTRIMAZOLE
  25. DOCUSATE SODIUM. [Concomitant]
     Active Substance: DOCUSATE SODIUM
  26. RENA-VITE [Concomitant]
     Active Substance: ASCORBIC ACID\BIOTIN\CALCIUM PANTOTHENATE\CYANOCOBALAMIN\FOLIC ACID\NIACINAMIDE\PYRIDOXINE HYDROCHLORIDE\RIBOFLAVIN\THIAMINE MONONITRATE
  27. TIVICAY [Concomitant]
     Active Substance: DOLUTEGRAVIR SODIUM
  28. TESTOSTERONE. [Concomitant]
     Active Substance: TESTOSTERONE
  29. NIFEDIPINE. [Concomitant]
     Active Substance: NIFEDIPINE
  30. APO-OXYCODONE/ACETAMINOPHEN [Concomitant]
     Active Substance: ACETAMINOPHEN\OXYCODONE HYDROCHLORIDE
  31. MEMANTINE. [Concomitant]
     Active Substance: MEMANTINE
  32. NOVASOURCE 2.0 [Concomitant]
  33. FLUTICASONE. [Concomitant]
     Active Substance: FLUTICASONE
  34. LABETALOL [Concomitant]
     Active Substance: LABETALOL\LABETALOL HYDROCHLORIDE
  35. LOSARTAN. [Concomitant]
     Active Substance: LOSARTAN
  36. TRUVADA [Suspect]
     Active Substance: EMTRICITABINE\TENOFOVIR DISOPROXIL FUMARATE
     Dosage: UNK
     Route: 048
     Dates: start: 201110, end: 201401
  37. TRAVATAN [Concomitant]
     Active Substance: TRAVOPROST
  38. BUPROPION. [Concomitant]
     Active Substance: BUPROPION
  39. NORVIR [Concomitant]
     Active Substance: RITONAVIR
  40. PREZISTA [Concomitant]
     Active Substance: DARUNAVIR ETHANOLATE
  41. PAROXETINE. [Concomitant]
     Active Substance: PAROXETINE
  42. MINOXIDIL. [Concomitant]
     Active Substance: MINOXIDIL
  43. DIPHENHYDRAMINE. [Concomitant]
     Active Substance: DIPHENHYDRAMINE
  44. SYMTUZA [Concomitant]
     Active Substance: COBICISTAT\DARUNAVIR\EMTRICITABINE\TENOFOVIR ALAFENAMIDE
  45. GABAPENTIN. [Concomitant]
     Active Substance: GABAPENTIN
  46. EPIVIR [Concomitant]
     Active Substance: LAMIVUDINE
  47. ISENTRESS [Concomitant]
     Active Substance: RALTEGRAVIR POTASSIUM
  48. OXYCODONE [Concomitant]
     Active Substance: OXYCODONE
  49. NAMENDA [Concomitant]
     Active Substance: MEMANTINE HYDROCHLORIDE
  50. NOVOLOG [Concomitant]
     Active Substance: INSULIN ASPART
  51. PREDNISOLONE. [Concomitant]
     Active Substance: PREDNISOLONE
  52. MORPHINE SULFATE. [Concomitant]
     Active Substance: MORPHINE SULFATE
  53. FAMOTIDINE. [Concomitant]
     Active Substance: FAMOTIDINE
  54. TIMOLOL. [Concomitant]
     Active Substance: TIMOLOL
  55. METOPROLOL. [Concomitant]
     Active Substance: METOPROLOL
  56. RENAL CAP [Concomitant]
  57. HYDRALAZINE [Concomitant]
     Active Substance: HYDRALAZINE HYDROCHLORIDE
  58. TERBINAFINE. [Concomitant]
     Active Substance: TERBINAFINE
  59. JANUVIA [Concomitant]
     Active Substance: SITAGLIPTIN PHOSPHATE
  60. DESCOVY [Concomitant]
     Active Substance: EMTRICITABINE\TENOFOVIR ALAFENAMIDE FUMARATE
  61. RISPERIDONE. [Concomitant]
     Active Substance: RISPERIDONE
  62. DIDANOSINE. [Concomitant]
     Active Substance: DIDANOSINE
  63. DORZOLAMIDE [Concomitant]
     Active Substance: DORZOLAMIDE
  64. LIPITOR [Concomitant]
     Active Substance: ATORVASTATIN CALCIUM
  65. CLONAZEPAM. [Concomitant]
     Active Substance: CLONAZEPAM
  66. RENAGEL [SEVELAMER CARBONATE] [Concomitant]
  67. PLAVIX [Concomitant]
     Active Substance: CLOPIDOGREL BISULFATE
  68. NITROGLYCERINE [Concomitant]
     Active Substance: NITROGLYCERIN
  69. CEPHALEXIN AMEL [Concomitant]
     Active Substance: CEPHALEXIN
  70. QUETIAPINE. [Concomitant]
     Active Substance: QUETIAPINE
  71. NEOMYCIN / POLY B / DEXAMETHASONE [Concomitant]
     Active Substance: DEXAMETHASONE\NEOMYCIN SULFATE\POLYMYXIN B SULFATE
  72. KETOCONAZOLE. [Concomitant]
     Active Substance: KETOCONAZOLE

REACTIONS (8)
  - Tooth loss [Recovered/Resolved]
  - Renal failure [Not Recovered/Not Resolved]
  - Emotional distress [Unknown]
  - Anxiety [Unknown]
  - Economic problem [Unknown]
  - Pain [Unknown]
  - Anhedonia [Unknown]
  - Bone density abnormal [Unknown]

NARRATIVE: CASE EVENT DATE: 20081202
